FAERS Safety Report 4393174-2 (Version None)
Quarter: 2004Q3

REPORT INFORMATION
  Report Type: 
  Country: None (occurrence: None)
  Receive Date: 20040708
  Receipt Date: 20040622
  Transmission Date: 20050211
  Serious: Yes (Hospitalization)
  Sender: FDA-Public Use
  Company Number: PHRM2004FR02208

PATIENT
  Age: 7 Year
  Sex: Male
  Weight: 26 kg

DRUGS (4)
  1. ESIDRIX [Suspect]
     Dosage: 50 MG/DAY
     Route: 048
     Dates: start: 19940905
  2. INDOCIN [Suspect]
     Dosage: 50 MG/DAY
     Route: 048
     Dates: start: 19940905
  3. SOLUPRED [Concomitant]
  4. OMEPRAZOLE [Concomitant]

REACTIONS (16)
  - ABDOMINAL PAIN [None]
  - ALPHA 1 GLOBULIN ABNORMAL [None]
  - ALPHA 1 GLOBULIN INCREASED [None]
  - ANOREXIA [None]
  - BIOPSY INTESTINE ABNORMAL [None]
  - BLOOD FIBRINOGEN INCREASED [None]
  - C-REACTIVE PROTEIN INCREASED [None]
  - COLITIS [None]
  - CROHN'S DISEASE [None]
  - DIARRHOEA [None]
  - FLATULENCE [None]
  - GASTRITIS [None]
  - GRANULOMA [None]
  - INFLAMMATION [None]
  - MICROCYTIC ANAEMIA [None]
  - VOMITING [None]
